FAERS Safety Report 5343951-6 (Version None)
Quarter: 2007Q2

REPORT INFORMATION
  Report Type: 
  Country: None (occurrence: None)
  Receive Date: 20070531
  Receipt Date: 20070531
  Transmission Date: 20071010
  Serious: Yes (Other)
  Sender: FDA-Public Use
  Company Number: None

PATIENT
  Sex: Female
  Weight: 103.8737 kg

DRUGS (6)
  1. ZETIA [Suspect]
     Indication: DRUG INEFFECTIVE
     Dosage: 10 MG DAILY PO
     Route: 048
     Dates: start: 20061115, end: 20070525
  2. ZETIA [Suspect]
     Indication: HYPERLIPIDAEMIA
     Dosage: 10 MG DAILY PO
     Route: 048
     Dates: start: 20061115, end: 20070525
  3. TRICOR [Suspect]
     Indication: HYPERLIPIDAEMIA
     Dosage: 145 MG DAILY PO
     Route: 048
     Dates: start: 20061004, end: 20070525
  4. HYDROCHLOROTHIAZIDE [Concomitant]
  5. METFORMIN HCL [Concomitant]
  6. PRILOSEC [Concomitant]

REACTIONS (5)
  - ABDOMINAL PAIN [None]
  - ALANINE AMINOTRANSFERASE INCREASED [None]
  - BLOOD CREATINE PHOSPHOKINASE INCREASED [None]
  - MUSCLE SPASMS [None]
  - MYOPATHY [None]
